FAERS Safety Report 5832830-3 (Version None)
Quarter: 2008Q3

REPORT INFORMATION
  Report Type: 
  Country: None (occurrence: None)
  Receive Date: 20080804
  Receipt Date: 20080723
  Transmission Date: 20090109
  Serious: Yes (Other)
  Sender: FDA-Public Use
  Company Number: BE-PFIZER INC-2008062204

PATIENT
  Sex: Female

DRUGS (5)
  1. CHANTIX [Suspect]
     Indication: SMOKING CESSATION THERAPY
     Dosage: TEXT:DAILY
     Route: 048
     Dates: start: 20080710, end: 20080722
  2. XANAX [Suspect]
     Route: 048
     Dates: start: 20080720, end: 20080720
  3. CANNABIS [Suspect]
  4. ST. JOHN'S WORT [Concomitant]
     Route: 048
  5. TRINOVUM [Concomitant]
     Route: 048

REACTIONS (4)
  - AGGRESSION [None]
  - ANGER [None]
  - PARADOXICAL DRUG REACTION [None]
  - TENSION [None]
